FAERS Safety Report 23560785 (Version 1)
Quarter: 2024Q1

REPORT INFORMATION
  Report Type: Spontaneous
  Country: CN (occurrence: CN)
  Receive Date: 20240223
  Receipt Date: 20240223
  Transmission Date: 20240409
  Serious: Yes (Other)
  Sender: FDA-Public Use
  Company Number: CN-009507513-2402CHN008213

PATIENT
  Age: 11 Year
  Sex: Female
  Weight: 50 kg

DRUGS (4)
  1. NOXAFIL [Suspect]
     Active Substance: POSACONAZOLE
     Indication: Pneumonia fungal
     Dosage: 200 MILLIGRAM, TID
     Route: 048
     Dates: start: 20220804, end: 20221028
  2. VINCRISTINE [Suspect]
     Active Substance: VINCRISTINE
     Indication: T-cell lymphoma stage III
     Dosage: 1.5 MG/M2/D D1, 2 MG
     Dates: start: 20221027, end: 2022
  3. VORICONAZOLE [Concomitant]
     Active Substance: VORICONAZOLE
     Indication: Pneumonia fungal
  4. CASPOFUNGIN ACETATE [Concomitant]
     Active Substance: CASPOFUNGIN ACETATE
     Indication: Pneumonia fungal

REACTIONS (4)
  - Neurotoxicity [Recovering/Resolving]
  - Drug interaction [Unknown]
  - Product use in unapproved indication [Unknown]
  - Product administered to patient of inappropriate age [Unknown]

NARRATIVE: CASE EVENT DATE: 20220804
